FAERS Safety Report 7969223-9 (Version None)
Quarter: 2011Q4

REPORT INFORMATION
  Report Type: 
  Country: None (occurrence: None)
  Receive Date: 20111209
  Receipt Date: 20111201
  Transmission Date: 20120403
  Serious: Yes (Hospitalization, Disabling)
  Sender: FDA-Public Use
  Company Number: US-MERCK-1106USA01022

PATIENT
  Age: 59 Year
  Sex: Female

DRUGS (2)
  1. FOSAMAX [Suspect]
     Indication: OSTEOPOROSIS
     Route: 048
     Dates: start: 19980101
  2. FOSAMAX [Suspect]
     Route: 048
     Dates: end: 20091203

REACTIONS (4)
  - HYPERCHOLESTEROLAEMIA [None]
  - FEMUR FRACTURE [None]
  - HYPERTENSION [None]
  - FRACTURE NONUNION [None]
